FAERS Safety Report 7601484-8 (Version None)
Quarter: 2011Q3

REPORT INFORMATION
  Report Type: 
  Country: None (occurrence: None)
  Receive Date: 20110711
  Receipt Date: 20110628
  Transmission Date: 20111222
  Serious: No
  Sender: FDA-Public Use
  Company Number: US-ROXANE LABORATORIES, INC.-2011-RO-00957RO

PATIENT
  Sex: Female
  Weight: 71 kg

DRUGS (2)
  1. METHADONE HCL [Suspect]
     Indication: PAIN
     Route: 048
     Dates: start: 20110609
  2. FENTANYL [Suspect]
     Indication: PAIN
     Route: 062
     Dates: start: 20110401, end: 20110609

REACTIONS (2)
  - INCOHERENT [None]
  - LETHARGY [None]
